FAERS Safety Report 9492819 (Version 1)
Quarter: 2013Q3

REPORT INFORMATION
  Report Type: Report from Study
  Country: IT (occurrence: US)
  Receive Date: 20130830
  Receipt Date: 20130830
  Transmission Date: 20140515
  Serious: Yes (Hospitalization)
  Sender: FDA-Public Use
  Company Number: IT-009507513-1308USA010652

PATIENT
  Age: 69 Year
  Sex: Male
  Weight: 74 kg

DRUGS (12)
  1. DEXAMETHASONE [Suspect]
     Indication: LOCALISED OEDEMA
     Dosage: 20 MG, QD
     Dates: start: 20130114, end: 20130117
  2. DEXAMETHASONE [Suspect]
     Dosage: 20 MG, QD
     Dates: start: 20130211, end: 20130214
  3. DEXAMETHASONE [Suspect]
     Dosage: 1 MG, QD
  4. DEXAMETHASONE [Suspect]
     Dosage: 32 GTT, QD
     Route: 048
     Dates: start: 20130513, end: 20130610
  5. MAGALDRATE [Concomitant]
     Dosage: UNK
     Dates: start: 20130322
  6. TEMSIROLIMUS [Suspect]
     Indication: MANTLE CELL LYMPHOMA
     Dosage: 75 MG, QW
     Route: 042
     Dates: start: 20130521, end: 20130604
  7. SULFAMETHOXAZOLE (+) TRIMETHOPRIM [Concomitant]
     Indication: ANTIBIOTIC PROPHYLAXIS
     Dosage: UNK
     Dates: start: 20130115
  8. FLUCONAZOLE [Concomitant]
     Indication: ANTIFUNGAL PROPHYLAXIS
     Dosage: UNK
     Dates: start: 20130322
  9. ACYCLOVIR [Concomitant]
     Indication: ANTIVIRAL PROPHYLAXIS
     Dosage: UNK
     Dates: start: 20130322
  10. ALLOPURINOL [Concomitant]
     Indication: HYPERURICAEMIA
     Dosage: UNK
     Dates: start: 20120810
  11. BICALUTAMIDE [Concomitant]
     Indication: PROSTATE CANCER RECURRENT
     Dosage: UNK
     Dates: start: 20120810
  12. LORAZEPAM [Concomitant]
     Indication: INSOMNIA
     Dosage: UNK
     Dates: start: 20120921

REACTIONS (1)
  - Acute abdomen [Recovered/Resolved]
